FAERS Safety Report 10905061 (Version 1)
Quarter: 2015Q1

REPORT INFORMATION
  Report Type: Spontaneous
  Country: US (occurrence: US)
  Receive Date: 20150311
  Receipt Date: 20150311
  Transmission Date: 20150721
  Serious: No
  Sender: FDA-Public Use
  Company Number: US-009507513-1503USA003655

PATIENT
  Sex: Female

DRUGS (5)
  1. AFRIN [Suspect]
     Active Substance: OXYMETAZOLINE
     Indication: LACRIMATION INCREASED
  2. AFRIN [Suspect]
     Active Substance: OXYMETAZOLINE
     Indication: SNEEZING
  3. AFRIN [Suspect]
     Active Substance: OXYMETAZOLINE
     Indication: NASOPHARYNGITIS
  4. AFRIN [Suspect]
     Active Substance: OXYMETAZOLINE
     Indication: EYE PRURITUS
  5. AFRIN [Suspect]
     Active Substance: OXYMETAZOLINE
     Indication: MALAISE
     Dosage: UNK, UNKNOWN
     Route: 045
     Dates: start: 2015

REACTIONS (4)
  - Sinusitis [Not Recovered/Not Resolved]
  - Condition aggravated [Not Recovered/Not Resolved]
  - Feeling abnormal [Not Recovered/Not Resolved]
  - Drug ineffective [Unknown]

NARRATIVE: CASE EVENT DATE: 2015
